FAERS Safety Report 14134796 (Version 1)
Quarter: 2017Q4

REPORT INFORMATION
  Report Type: Spontaneous
  Country: IR (occurrence: IR)
  Receive Date: 20171027
  Receipt Date: 20171027
  Transmission Date: 20180321
  Serious: Yes (Other)
  Sender: FDA-Public Use
  Company Number: IR-INFO-000500

PATIENT
  Age: 59 Year

DRUGS (2)
  1. ZOLEDRONIC ACID [Suspect]
     Active Substance: ZOLEDRONIC ACID
     Route: 065
  2. SUNITINIB [Suspect]
     Active Substance: SUNITINIB
     Route: 065

REACTIONS (2)
  - Osteonecrosis of jaw [Unknown]
  - Drug interaction [Unknown]
